FAERS Safety Report 9321194 (Version 1)
Quarter: 2013Q2

REPORT INFORMATION
  Report Type: Spontaneous
  Country: US (occurrence: US)
  Receive Date: 20130531
  Receipt Date: 20130531
  Transmission Date: 20140414
  Serious: No
  Sender: FDA-Public Use
  Company Number: US-MYLANLABS-2013S1007316

PATIENT
  Age: 61 Year
  Sex: Female
  Weight: 53.52 kg

DRUGS (3)
  1. DOXYCYCLINE HYCLATE DELAYED-RELEASE TABLETS USP [Suspect]
     Indication: ROSACEA
     Route: 048
     Dates: start: 20130325
  2. DOXYCYCLINE HYCLATE DELAYED-RELEASE TABLETS USP [Suspect]
     Indication: OFF LABEL USE
     Route: 048
     Dates: start: 20130325
  3. SYNTHROID [Concomitant]
     Indication: HYPOTHYROIDISM

REACTIONS (1)
  - Gastrooesophageal reflux disease [Not Recovered/Not Resolved]
